FAERS Safety Report 8417655-7 (Version None)
Quarter: 2012Q2

REPORT INFORMATION
  Report Type: 
  Country: None (occurrence: None)
  Receive Date: 20120606
  Receipt Date: 20120529
  Transmission Date: 20120825
  Serious: Yes (Other)
  Sender: FDA-Public Use
  Company Number: JP-VERTEX PHARMACEUTICALS INC.-AE-2012-006226

PATIENT
  Age: 37 Year
  Sex: Male

DRUGS (8)
  1. TELAVIC (TELAPREVIR) [Suspect]
     Route: 048
     Dates: start: 20120421, end: 20120425
  2. REBETOL [Concomitant]
     Route: 048
     Dates: start: 20120316, end: 20120425
  3. REBETOL [Concomitant]
     Route: 048
     Dates: start: 20120428
  4. TELAVIC (TELAPREVIR) [Suspect]
     Indication: HEPATITIS C
     Route: 048
     Dates: start: 20120217, end: 20120420
  5. TELAVIC (TELAPREVIR) [Suspect]
     Route: 048
     Dates: start: 20120507, end: 20120518
  6. PEGINTERFERON ALFA-2B [Concomitant]
     Route: 051
     Dates: start: 20120217
  7. REBETOL [Concomitant]
     Indication: HEPATITIS C
     Route: 048
     Dates: start: 20120217, end: 20120315
  8. FAMOTIDINE [Concomitant]
     Route: 048
     Dates: start: 20120425, end: 20120506

REACTIONS (1)
  - RASH [None]
